FAERS Safety Report 6564158 (Version 2)
Quarter: 2015Q4

REPORT INFORMATION
  Report Type: Spontaneous
  Country: AU (occurrence: AU)
  Receive Date: 20080227
  Receipt Date: 20151015
  Transmission Date: 20160305
  Serious: Yes (Other)
  Sender: FDA-Public Use
  Company Number: AU-PFIZER INC-2008016667

PATIENT
  Sex: Female

DRUGS (7)
  1. CODEINE PHOSPHATE, PARACETAMOL [Concomitant]
     Indication: ABDOMINAL PAIN UPPER
     Dosage: [PARACETAMOL 500 MG]/[CODEINE 10 MG], UNK
  2. NEO-MERCAZOLE [Concomitant]
     Active Substance: CARBIMAZOLE
     Dosage: 1 TABLET MANE
  3. KALMA [Concomitant]
     Active Substance: ALPRAZOLAM
     Dosage: 0.5 MG, 2X/DAY
  4. ANTENEX [Concomitant]
     Active Substance: DIAZEPAM
     Dosage: 2.5 MG, 3X/DAY
  5. PARIET [Concomitant]
     Active Substance: RABEPRAZOLE SODIUM
     Dosage: 1 TABLET MANE
  6. SPIRIVA [Concomitant]
     Active Substance: TIOTROPIUM BROMIDE MONOHYDRATE
     Dosage: UNK
  7. CHAMPIX [Suspect]
     Active Substance: VARENICLINE TARTRATE
     Dosage: UNK
     Dates: start: 20080130

REACTIONS (8)
  - Paraesthesia [Unknown]
  - Dysphagia [Unknown]
  - Hyperhidrosis [Unknown]
  - Pain in extremity [Unknown]
  - Dizziness [Unknown]
  - Abdominal pain upper [Unknown]
  - Abdominal distension [Unknown]
  - Oropharyngeal pain [Unknown]

NARRATIVE: CASE EVENT DATE: 2008
